FAERS Safety Report 5713067-5 (Version None)
Quarter: 2008Q2

REPORT INFORMATION
  Report Type: 
  Country: None (occurrence: None)
  Receive Date: 20080422
  Receipt Date: 20080408
  Transmission Date: 20081010
  Serious: Yes (Other)
  Sender: FDA-Public Use
  Company Number: ES-ROCHE-557371

PATIENT
  Age: 79 Year
  Sex: Male

DRUGS (3)
  1. XELODA [Suspect]
     Indication: GASTRIC CANCER STAGE IV
     Dosage: FORM: FOLM-COATED TABLETS, DOSING REGIMEN: CYCLE.
     Route: 048
     Dates: start: 20070619, end: 20071019
  2. CISPLATIN [Concomitant]
     Indication: GASTRIC CANCER STAGE IV
     Dosage: DOSING REGIMEN: CYCLE
     Dates: start: 20070619, end: 20071019
  3. OMEPRAZOLE [Concomitant]
     Route: 048
     Dates: start: 20060101

REACTIONS (2)
  - ERYTHRODERMIC PSORIASIS [None]
  - PHOTOSENSITIVITY REACTION [None]
